FAERS Safety Report 22066255 (Version 1)
Quarter: 2023Q1

REPORT INFORMATION
  Report Type: Spontaneous
  Country: US (occurrence: None)
  Receive Date: 20230305
  Receipt Date: 20230305
  Transmission Date: 20230417
  Serious: Yes (Hospitalization)
  Sender: FDA-Public Use
  Company Number: None

PATIENT
  Age: 75 Year
  Sex: Male
  Weight: 87.54 kg

DRUGS (12)
  1. LENALIDOMIDE [Suspect]
     Active Substance: LENALIDOMIDE
     Indication: Plasma cell myeloma
     Dosage: FREQUENCY : DAILY;?
     Route: 048
     Dates: start: 20220810
  2. ALBUTEROL [Concomitant]
  3. ATORVASTATIN [Concomitant]
  4. CLOPIDOGREL [Concomitant]
  5. DITIAZEM [Concomitant]
  6. DOXAZOSIN [Concomitant]
  7. LACTOBACILLUS ACIDOPHILUS [Concomitant]
     Active Substance: LACTOBACILLUS ACIDOPHILUS
  8. LEVOCETIRIZINE [Concomitant]
  9. LOSARTAN [Concomitant]
  10. MESALAMINE [Concomitant]
  11. METFORMIN [Concomitant]
  12. SYNTHROID [Concomitant]

REACTIONS (2)
  - Norovirus infection [None]
  - Therapy interrupted [None]

NARRATIVE: CASE EVENT DATE: 20230212
